FAERS Safety Report 5113540-7 (Version None)
Quarter: 2006Q3

REPORT INFORMATION
  Report Type: 
  Country: None (occurrence: None)
  Receive Date: 20060921
  Receipt Date: 20060921
  Transmission Date: 20061208
  Serious: Yes (Life-Threatening, Hospitalization)
  Sender: FDA-Public Use
  Company Number: None

PATIENT
  Age: 89 Year
  Sex: Male
  Weight: 70.4 kg

DRUGS (15)
  1. WARFARIN SODIUM [Suspect]
     Indication: AORTIC VALVE REPLACEMENT
     Dosage: SEE IMAGE
     Route: 048
  2. FUROSEMIDE [Concomitant]
  3. DIGOXIN [Concomitant]
  4. ZAROXOLYN [Concomitant]
  5. FERROUS SULFATE TAB [Concomitant]
  6. POTASSIUM CHLORIDE [Concomitant]
  7. SPIRONOLACTONE [Concomitant]
  8. ZOLPIDEM TARTRATE [Concomitant]
  9. ALLOPURINOL [Concomitant]
  10. FLUTICASONE PROPIONATE [Concomitant]
  11. IPRATROPIUM BROMIDE [Concomitant]
  12. OMEPRAZOLE [Concomitant]
  13. MONETASONE [Concomitant]
  14. CETIRIZINE HCL [Concomitant]
  15. BENZONATATE [Concomitant]

REACTIONS (3)
  - GASTROINTESTINAL HAEMORRHAGE [None]
  - IATROGENIC INJURY [None]
  - INTERNATIONAL NORMALISED RATIO ABNORMAL [None]
